FAERS Safety Report 6727496-4 (Version None)
Quarter: 2010Q2

REPORT INFORMATION
  Report Type: 
  Country: None (occurrence: None)
  Receive Date: 20100517
  Receipt Date: 20100511
  Transmission Date: 20101027
  Serious: Yes (Hospitalization)
  Sender: FDA-Public Use
  Company Number: PL-BRISTOL-MYERS SQUIBB COMPANY-15101520

PATIENT
  Age: 50 Year
  Sex: Male

DRUGS (2)
  1. ABILIFY [Suspect]
     Dosage: THEN 15MG/DAY IN MORNING.DOSE REDUCED TO 22,5 MG/DAY.AFTERDISCHARGE 30MG/DAY
     Route: 048
  2. CARBAMAZEPINE [Concomitant]
     Dosage: 2 DOSES

REACTIONS (6)
  - DECREASED APPETITE [None]
  - FATIGUE [None]
  - IRRITABILITY [None]
  - PARANOIA [None]
  - SOMNOLENCE [None]
  - WEIGHT DECREASED [None]
